FAERS Safety Report 24793255 (Version 1)
Quarter: 2024Q4

REPORT INFORMATION
  Report Type: Spontaneous
  Country: US (occurrence: None)
  Receive Date: 20241230
  Receipt Date: 20241230
  Transmission Date: 20250115
  Serious: No
  Sender: Public
  Company Number: None

PATIENT
  Age: 48 Year
  Sex: Female
  Weight: 72.57 kg

DRUGS (1)
  1. SKYRIZI [Suspect]
     Active Substance: RISANKIZUMAB-RZAA
     Indication: Colitis ulcerative
     Dosage: INJECT 360MG SUBCUTANEOUSLY USING THE ON-BODY INJECTOR     EVERY 8 WEEKS AS DIRECTED.?
     Route: 058
     Dates: start: 202409

REACTIONS (2)
  - Autoimmune disorder [None]
  - Arthralgia [None]
